FAERS Safety Report 26179523 (Version 1)
Quarter: 2025Q4

REPORT INFORMATION
  Report Type: Spontaneous
  Country: US (occurrence: US)
  Receive Date: 20251219
  Receipt Date: 20251219
  Transmission Date: 20260118
  Serious: Yes (Life-Threatening, Hospitalization)
  Sender: MYLAN
  Company Number: US-MYLANLABS-2025M1107317

PATIENT
  Age: 23 Year
  Sex: Male

DRUGS (16)
  1. VERAPAMIL [Suspect]
     Active Substance: VERAPAMIL HYDROCHLORIDE
     Indication: Product used for unknown indication
     Dosage: EXTENDED-RELEASE
  2. VERAPAMIL [Suspect]
     Active Substance: VERAPAMIL HYDROCHLORIDE
     Dosage: EXTENDED-RELEASE
     Route: 065
  3. VERAPAMIL [Suspect]
     Active Substance: VERAPAMIL HYDROCHLORIDE
     Dosage: EXTENDED-RELEASE
     Route: 065
  4. VERAPAMIL [Suspect]
     Active Substance: VERAPAMIL HYDROCHLORIDE
     Dosage: EXTENDED-RELEASE
  5. GLUCAGON [Suspect]
     Active Substance: GLUCAGON
     Indication: Intentional overdose
     Dosage: UNK
  6. GLUCAGON [Suspect]
     Active Substance: GLUCAGON
     Dosage: UNK
     Route: 065
  7. GLUCAGON [Suspect]
     Active Substance: GLUCAGON
     Dosage: UNK
     Route: 065
  8. GLUCAGON [Suspect]
     Active Substance: GLUCAGON
     Dosage: UNK
  9. CALCIUM CHLORIDE [Suspect]
     Active Substance: CALCIUM CHLORIDE
     Indication: Intentional overdose
     Dosage: UNK
  10. CALCIUM CHLORIDE [Suspect]
     Active Substance: CALCIUM CHLORIDE
     Dosage: UNK
     Route: 065
  11. CALCIUM CHLORIDE [Suspect]
     Active Substance: CALCIUM CHLORIDE
     Dosage: UNK
     Route: 065
  12. CALCIUM CHLORIDE [Suspect]
     Active Substance: CALCIUM CHLORIDE
     Dosage: UNK
  13. INSULIN NOS [Suspect]
     Active Substance: INSULIN NOS
     Indication: Intentional overdose
     Dosage: HIGH DOSE
  14. INSULIN NOS [Suspect]
     Active Substance: INSULIN NOS
     Dosage: HIGH DOSE
     Route: 065
  15. INSULIN NOS [Suspect]
     Active Substance: INSULIN NOS
     Dosage: HIGH DOSE
     Route: 065
  16. INSULIN NOS [Suspect]
     Active Substance: INSULIN NOS
     Dosage: HIGH DOSE

REACTIONS (12)
  - Hypotension [Recovered/Resolved]
  - Bradycardia [Recovered/Resolved]
  - Bundle branch block left [Recovered/Resolved]
  - Electrocardiogram QT prolonged [Recovered/Resolved]
  - Nodal rhythm [Recovered/Resolved]
  - Respiratory failure [Recovered/Resolved]
  - Shock [Recovered/Resolved]
  - Acute kidney injury [Recovered/Resolved]
  - Acute respiratory distress syndrome [Recovered/Resolved]
  - Intentional overdose [Recovered/Resolved]
  - Drug ineffective [Unknown]
  - Product prescribing issue [Unknown]
